APPROVED DRUG PRODUCT: ABRAXANE
Active Ingredient: PACLITAXEL
Strength: 100MG/VIAL
Dosage Form/Route: POWDER;INTRAVENOUS
Application: N021660 | Product #001 | TE Code: AB
Applicant: BRISTOL-MYERS SQUIBB CO
Approved: Jan 7, 2005 | RLD: Yes | RS: Yes | Type: RX

PATENTS:
Patent 9511046 | Expires: Jan 12, 2034
Patent 9393318 | Expires: Mar 4, 2032
Patent 9597409 | Expires: Mar 4, 2032
Patent 8268348 | Expires: Feb 21, 2026
Patent 9101543 | Expires: Feb 21, 2026
Patent 7758891 | Expires: Feb 21, 2026
Patent 8034375*PED | Expires: Feb 13, 2027
Patent 8268348*PED | Expires: Aug 21, 2026
Patent 7758891*PED | Expires: Aug 21, 2026
Patent 9393318*PED | Expires: Sep 4, 2032
Patent 9101543*PED | Expires: Aug 21, 2026
Patent 9597409*PED | Expires: Sep 4, 2032
Patent 9511046*PED | Expires: Jul 12, 2034
Patent 8034375 | Expires: Aug 13, 2026